FAERS Safety Report 18328828 (Version 1)
Quarter: 2020Q3

REPORT INFORMATION
  Report Type: Spontaneous
  Country: US (occurrence: US)
  Receive Date: 20200929
  Receipt Date: 20200929
  Transmission Date: 20201103
  Serious: Yes (Other)
  Sender: FDA-Public Use
  Company Number: None

PATIENT
  Age: 30 Year
  Sex: Male

DRUGS (2)
  1. BUP/NAL 8/2MG FILM [Suspect]
     Active Substance: BUPRENORPHINE\NALOXONE
     Indication: DRUG DEPENDENCE
     Dosage: ?          OTHER DOSE:16/4 MG;?
     Route: 060
     Dates: start: 202002
  2. BUP/NAL 8/2 TAB [Suspect]
     Active Substance: BUPRENORPHINE\NALOXONE
     Dosage: ?          OTHER DOSE:16/4 MG;?
     Route: 060
     Dates: start: 202003

REACTIONS (6)
  - Drug withdrawal syndrome [None]
  - Product substitution issue [None]
  - Hyperhidrosis [None]
  - Anxiety [None]
  - Headache [None]
  - Chills [None]

NARRATIVE: CASE EVENT DATE: 20200225
